FAERS Safety Report 7072042-1 (Version None)
Quarter: 2010Q4

REPORT INFORMATION
  Report Type: 
  Country: None (occurrence: None)
  Receive Date: 20101029
  Receipt Date: 20091207
  Transmission Date: 20110411
  Serious: No
  Sender: FDA-Public Use
  Company Number: A0826655A

PATIENT
  Age: 47 Year
  Sex: Female

DRUGS (7)
  1. ADVAIR DISKUS 100/50 [Suspect]
     Indication: ASTHMA
     Dosage: 1PUFF TWICE PER DAY
     Route: 055
     Dates: start: 20030101
  2. PROVENTIL [Concomitant]
  3. COUMADIN [Concomitant]
  4. SYNTHROID [Concomitant]
  5. CYTOMEL [Concomitant]
  6. VALIUM [Concomitant]
  7. ORAL STEROIDS [Concomitant]

REACTIONS (5)
  - ADVERSE EVENT [None]
  - APHONIA [None]
  - BRONCHOSPASM [None]
  - DRUG HYPERSENSITIVITY [None]
  - FEELING ABNORMAL [None]
